FAERS Safety Report 16787668 (Version 5)
Quarter: 2020Q4

REPORT INFORMATION
  Report Type: Report from Study
  Country: GR (occurrence: GR)
  Receive Date: 20190909
  Receipt Date: 20201007
  Transmission Date: 20210113
  Serious: Yes (Other)
  Sender: FDA-Public Use
  Company Number: GR-BAUSCH-BL-2019-025667

PATIENT
  Age: 55 Year
  Sex: Female
  Weight: 60 kg

DRUGS (1)
  1. KYNTHEUM [Suspect]
     Active Substance: BRODALUMAB
     Indication: PSORIASIS
     Route: 065
     Dates: start: 20190620, end: 20190802

REACTIONS (7)
  - Oropharyngeal pain [Unknown]
  - Hepatitis [Recovered/Resolved]
  - Hepatic enzyme abnormal [Recovered/Resolved]
  - Taste disorder [Unknown]
  - Fatigue [Unknown]
  - Myalgia [Unknown]
  - Hepatic enzyme abnormal [Recovered/Resolved]

NARRATIVE: CASE EVENT DATE: 20190708
